FAERS Safety Report 24973290 (Version 1)
Quarter: 2025Q1

REPORT INFORMATION
  Report Type: Report from Study
  Country: TR (occurrence: TR)
  Receive Date: 20250216
  Receipt Date: 20250216
  Transmission Date: 20250408
  Serious: Yes (Death)
  Sender: ABBVIE
  Company Number: TR-ABBVIE-6133483

PATIENT
  Weight: 60 kg

DRUGS (10)
  1. CARBIDOPA\LEVODOPA [Suspect]
     Active Substance: CARBIDOPA\LEVODOPA
     Indication: Parkinson^s disease
     Route: 050
     Dates: start: 20210929
  2. CARBIDOPA\LEVODOPA [Suspect]
     Active Substance: CARBIDOPA\LEVODOPA
  3. ELIQU S [Concomitant]
     Indication: Anticoagulant therapy
     Dosage: STRENGTH: 5 MILLIGRAM
     Route: 048
     Dates: start: 2019
  4. BENSERAZIDE HYDROCHLORIDE\LEVODOPA [Concomitant]
     Active Substance: BENSERAZIDE HYDROCHLORIDE\LEVODOPA
     Indication: Parkinson^s disease
     Route: 048
     Dates: start: 2011
  5. EUTHYROX [Concomitant]
     Active Substance: LEVOTHYROXINE SODIUM
     Indication: Hypothyroidism
     Dosage: 75 MILLIGRAM
     Route: 048
     Dates: start: 2020
  6. CANDEXIL PLUS [Concomitant]
     Indication: Hypertension
     Dosage: 16/12.5 MG
     Route: 048
     Dates: start: 2016
  7. AMANTADINE SULFATE [Concomitant]
     Active Substance: AMANTADINE SULFATE
     Indication: Parkinson^s disease
     Route: 048
     Dates: start: 20220201
  8. PIRIBEDIL [Concomitant]
     Active Substance: PIRIBEDIL
     Indication: Parkinson^s disease
     Route: 048
     Dates: start: 20220201
  9. INVESTIGATIONAL PRODUCT [Concomitant]
     Active Substance: INVESTIGATIONAL PRODUCT
     Indication: COVID-19 immunisation
     Dates: start: 20210930
  10. INVESTIGATIONAL PRODUCT [Concomitant]
     Active Substance: INVESTIGATIONAL PRODUCT
     Indication: COVID-19 immunisation
     Route: 030
     Dates: start: 20210830

REACTIONS (1)
  - General physical health deterioration [Fatal]
